FAERS Safety Report 15454816 (Version 1)
Quarter: 2018Q4

REPORT INFORMATION
  Report Type: Spontaneous
  Country: US (occurrence: US)
  Receive Date: 20181002
  Receipt Date: 20181002
  Transmission Date: 20190204
  Serious: No
  Sender: FDA-Public Use
  Company Number: US-BAYER-2018-182309

PATIENT
  Sex: Male

DRUGS (2)
  1. METAMUCIL [Concomitant]
     Active Substance: PLANTAGO SEED
     Indication: IRRITABLE BOWEL SYNDROME
     Dosage: UNK UNK, BID
  2. MIRALAX [Suspect]
     Active Substance: POLYETHYLENE GLYCOL 3350
     Indication: IRRITABLE BOWEL SYNDROME
     Dosage: UNK
     Route: 065
     Dates: start: 20180926

REACTIONS (5)
  - Constipation [Unknown]
  - Off label use [None]
  - Product use in unapproved indication [None]
  - Chest pain [None]
  - Abdominal pain upper [Unknown]

NARRATIVE: CASE EVENT DATE: 20180926
